FAERS Safety Report 10476469 (Version 3)
Quarter: 2014Q4

REPORT INFORMATION
  Report Type: Spontaneous
  Country: US (occurrence: US)
  Receive Date: 20140925
  Receipt Date: 20141114
  Transmission Date: 20150528
  Serious: Yes (Death, Other)
  Sender: FDA-Public Use
  Company Number: US-GLAXOSMITHKLINE-A1090918A

PATIENT
  Age: 78 Year
  Sex: Male

DRUGS (2)
  1. VOTRIENT [Suspect]
     Active Substance: PAZOPANIB HYDROCHLORIDE
     Dosage: 800 MG, QD
  2. VOTRIENT [Suspect]
     Active Substance: PAZOPANIB HYDROCHLORIDE
     Dosage: 800 MG, QD
     Route: 065

REACTIONS (11)
  - Haemorrhage [Not Recovered/Not Resolved]
  - Joint injury [Unknown]
  - Hypersomnia [Not Recovered/Not Resolved]
  - Death [Fatal]
  - Head injury [Unknown]
  - Muscular weakness [Not Recovered/Not Resolved]
  - Blood urine present [Not Recovered/Not Resolved]
  - Disorientation [Unknown]
  - Fall [Unknown]
  - Dysarthria [Not Recovered/Not Resolved]
  - Depressed level of consciousness [Unknown]

NARRATIVE: CASE EVENT DATE: 201409
